FAERS Safety Report 9912626 (Version 1)
Quarter: 2014Q1

REPORT INFORMATION
  Report Type: Spontaneous
  Country: US (occurrence: None)
  Receive Date: 20140218
  Receipt Date: 20140218
  Transmission Date: 20141002
  Serious: Yes (Hospitalization)
  Sender: FDA-Public Use
  Company Number: None

PATIENT
  Age: 57 Year
  Sex: Male
  Weight: 82.2 kg

DRUGS (2)
  1. CISPLATIN [Suspect]
  2. ETOPOSIDE (VP-16) [Suspect]

REACTIONS (5)
  - Pyrexia [None]
  - Chills [None]
  - Headache [None]
  - Oropharyngeal pain [None]
  - Neutrophil count decreased [None]
